FAERS Safety Report 6357323-9 (Version None)
Quarter: 2009Q3

REPORT INFORMATION
  Report Type: 
  Country: None (occurrence: None)
  Receive Date: 20090916
  Receipt Date: 20070503
  Transmission Date: 20100115
  Serious: Yes (Other)
  Sender: FDA-Public Use
  Company Number: US-ASTRAZENECA-2007UW02121

PATIENT
  Age: 14605 Day
  Sex: Male
  Weight: 97 kg

DRUGS (19)
  1. SEROQUEL [Suspect]
     Indication: SCHIZOPHRENIA
     Dosage: 50 TO 400 MG
     Route: 048
     Dates: start: 20000610, end: 20061101
  2. SEROQUEL [Suspect]
     Dosage: 100 MG-150 MG DAILY
     Route: 048
     Dates: start: 20000101
  3. ABILIFY [Concomitant]
     Dosage: 15 TO 30 MG
     Dates: start: 20040901
  4. HALDOL [Concomitant]
     Dates: start: 19800101
  5. RISPERDAL [Concomitant]
     Dosage: 2 TO 4 MG
     Dates: start: 20000101, end: 20010101
  6. RISPERDAL [Concomitant]
     Dosage: 2 MG-3 MG AT NIGHT
     Dates: start: 19980101
  7. ZYPREXA [Concomitant]
     Dates: start: 20000501
  8. NAVANE [Concomitant]
     Dates: start: 19860101
  9. PROLIXIN [Concomitant]
     Indication: PSYCHOTIC DISORDER
     Dosage: TOTAL DAILY DOSE OF 7.5 MG
     Dates: start: 19990101
  10. ZOLOFT [Concomitant]
     Indication: DEPRESSION
     Dates: start: 20000101
  11. HYDROXYZINE [Concomitant]
     Indication: SLEEP DISORDER
     Dates: start: 20000101
  12. TRAZODONE [Concomitant]
     Dates: start: 20000101
  13. GEODON [Concomitant]
     Dosage: 40 MG-80 MG DAILY
     Route: 048
     Dates: start: 20060201
  14. ASPIRIN [Concomitant]
     Indication: ANTIPLATELET THERAPY
     Route: 048
     Dates: start: 20040101
  15. AMARYL [Concomitant]
     Route: 048
     Dates: start: 20060620
  16. ACTOS [Concomitant]
     Route: 048
     Dates: start: 20060620
  17. ZOCOR [Concomitant]
     Indication: BLOOD CHOLESTEROL INCREASED
     Route: 048
     Dates: start: 20040101
  18. RESTORIL [Concomitant]
     Dates: start: 20060201
  19. HYDROCHLOROTHIAZIDE [Concomitant]
     Indication: HYPERTENSION
     Dates: start: 20040101

REACTIONS (18)
  - ABDOMINAL PAIN UPPER [None]
  - ANORECTAL DISCOMFORT [None]
  - ARTHRITIS [None]
  - BLOOD CHOLESTEROL INCREASED [None]
  - DIABETES MELLITUS [None]
  - DYSPEPSIA [None]
  - ERECTILE DYSFUNCTION [None]
  - HAEMORRHOIDS [None]
  - HOMICIDAL IDEATION [None]
  - HYPERGLYCAEMIA [None]
  - INSOMNIA [None]
  - MUSCULOSKELETAL PAIN [None]
  - NECK PAIN [None]
  - OBESITY [None]
  - RESPIRATORY TRACT INFECTION [None]
  - SUICIDAL IDEATION [None]
  - TYPE 2 DIABETES MELLITUS [None]
  - WEIGHT INCREASED [None]
